FAERS Safety Report 7266938-5 (Version None)
Quarter: 2011Q1

REPORT INFORMATION
  Report Type: 
  Country: None (occurrence: None)
  Receive Date: 20110201
  Receipt Date: 20110121
  Transmission Date: 20110831
  Serious: Yes (Other)
  Sender: FDA-Public Use
  Company Number: BR-JNJFOC-20110106378

PATIENT
  Age: 45 Year
  Sex: Female

DRUGS (4)
  1. REMICADE [Suspect]
     Route: 042
  2. MESALAZINE [Concomitant]
  3. REMICADE [Suspect]
     Indication: CROHN'S DISEASE
     Route: 042
  4. AZATHIOPRINE [Concomitant]

REACTIONS (4)
  - PYREXIA [None]
  - OROPHARYNGEAL PAIN [None]
  - MYALGIA [None]
  - ATRIAL FIBRILLATION [None]
